FAERS Safety Report 6264451-5 (Version None)
Quarter: 2009Q3

REPORT INFORMATION
  Report Type: 
  Country: None (occurrence: None)
  Receive Date: 20090710
  Receipt Date: 20090701
  Transmission Date: 20100115
  Serious: Yes (Other)
  Sender: FDA-Public Use
  Company Number: GB-MERCK-0809GBR00139

PATIENT
  Age: 49 Year
  Sex: Male

DRUGS (2)
  1. FOSAMAX [Suspect]
     Indication: ARTHRITIS
     Route: 048
  2. INSULIN [Concomitant]
     Route: 065

REACTIONS (4)
  - CANDIDIASIS [None]
  - DRUG ADMINISTRATION ERROR [None]
  - DYSPHAGIA [None]
  - TONGUE ULCERATION [None]
